FAERS Safety Report 8475899-2 (Version None)
Quarter: 2012Q2

REPORT INFORMATION
  Report Type: 
  Country: None (occurrence: None)
  Receive Date: 20120628
  Receipt Date: 20120613
  Transmission Date: 20120825
  Serious: Yes (Life-Threatening)
  Sender: FDA-Public Use
  Company Number: DE-PFIZER INC-2012153181

PATIENT
  Age: 94 Year
  Sex: Female

DRUGS (11)
  1. RAMIPRIL [Suspect]
     Dosage: 2.5 MG, DAILY
     Route: 048
  2. METOPROLOL [Concomitant]
  3. HYDROCHLOROTHIAZIDE [Suspect]
     Dosage: 12.5 MG, DAILY
     Route: 048
  4. ACC 200 [Concomitant]
     Dosage: UNK
     Dates: start: 20111130
  5. SERTRALINE HYDROCHLORIDE [Suspect]
     Dosage: 50 MG, DAILY
     Route: 048
     Dates: start: 20111129, end: 20111230
  6. SEROQUEL [Suspect]
     Indication: DEMENTIA ALZHEIMER'S TYPE
     Dosage: 25 MG, DAILY
     Route: 048
     Dates: start: 20111121, end: 20111202
  7. ACETYLSALICYLIC ACID [Concomitant]
  8. SERTRALINE HYDROCHLORIDE [Suspect]
     Dosage: 25 MG, DAILY
     Route: 048
     Dates: start: 20111126, end: 20111128
  9. PANTOPRAZOLE [Suspect]
     Dosage: 20 MG, DAILY
     Route: 048
  10. LEVOTHYROXINE SODIUM [Concomitant]
     Indication: HYPOTHYROIDISM
  11. VESICARE [Concomitant]

REACTIONS (1)
  - HYPONATRAEMIA [None]
